FAERS Safety Report 10375654 (Version 1)
Quarter: 2014Q3

REPORT INFORMATION
  Report Type: Spontaneous
  Country: IT (occurrence: IT)
  Receive Date: 20140811
  Receipt Date: 20140811
  Transmission Date: 20150326
  Serious: Yes (Hospitalization)
  Sender: FDA-Public Use
  Company Number: IT-TEVA-499003ISR

PATIENT
  Age: 80 Year
  Sex: Female
  Weight: 67 kg

DRUGS (7)
  1. LAMICTAL 25 MG [Concomitant]
     Dosage: 1 DOSAGE FORMS DAILY;
     Route: 048
  2. NOVONORM 1 MG [Concomitant]
     Indication: TYPE 2 DIABETES MELLITUS
     Dosage: 1 DOSAGE FORMS DAILY;
     Route: 048
  3. DEPAKENE [Concomitant]
     Active Substance: VALPROIC ACID
     Dosage: 1 DOSAGE FORMS DAILY;
     Route: 048
  4. ZOCOR 20 MG [Concomitant]
     Dosage: 1 DOSAGE FORMS DAILY;
     Route: 048
  5. LENDORMIN 0.25 MG [Concomitant]
     Dosage: 1 DOSAGE FORMS DAILY;
  6. CIPRALEX [Interacting]
     Active Substance: ESCITALOPRAM OXALATE
     Indication: DEPRESSION
     Dosage: 1 DOSAGE FORMS DAILY;
     Route: 048
     Dates: start: 20110101, end: 20130925
  7. CARBOLITHIUM 300MG [Suspect]
     Active Substance: LITHIUM CARBONATE
     Indication: BIPOLAR DISORDER
     Dosage: 2 DOSAGE FORMS DAILY;
     Route: 048
     Dates: start: 20130301, end: 20130924

REACTIONS (6)
  - Headache [Recovered/Resolved]
  - Drug interaction [Recovered/Resolved]
  - Tremor [Recovered/Resolved]
  - Toxicity to various agents [Recovered/Resolved]
  - Hypothyroidism [Recovered/Resolved]
  - Bradyphrenia [Recovered/Resolved]

NARRATIVE: CASE EVENT DATE: 20130920
